FAERS Safety Report 9502636 (Version 1)
Quarter: 2013Q3

REPORT INFORMATION
  Report Type: Report from Study
  Country: JP (occurrence: JP)
  Receive Date: 20130906
  Receipt Date: 20130906
  Transmission Date: 20140515
  Serious: Yes (Death, Life-Threatening)
  Sender: FDA-Public Use
  Company Number: JP-GENZYME-THYM-1004096

PATIENT
  Age: 82 Year
  Sex: Male
  Weight: 53 kg

DRUGS (11)
  1. THYMOGLOBULIN [Suspect]
     Indication: APLASTIC ANAEMIA
     Dosage: 5 DOSES
     Route: 065
     Dates: start: 20121006, end: 20121010
  2. FLUCONAZOLE [Concomitant]
     Indication: ANTIFUNGAL PROPHYLAXIS
     Dosage: 100 MG, QD
     Route: 065
     Dates: start: 20121005, end: 20121112
  3. OMEPRAL [Concomitant]
     Indication: PROPHYLAXIS AGAINST GASTROINTESTINAL ULCER
     Dosage: 10 MG, QD
     Route: 065
     Dates: start: 20121005, end: 20121112
  4. ISCOTIN [Concomitant]
     Indication: ANTIBIOTIC PROPHYLAXIS
     Dosage: 200 MG, QD
     Route: 065
     Dates: start: 20121005, end: 20121112
  5. BAKTAR [Concomitant]
     Indication: ANTIFUNGAL PROPHYLAXIS
     Dosage: 2 TABLETS, PER DAY, TWICE WEEKLY
     Route: 065
     Dates: start: 20121005, end: 20121112
  6. LENDORMIN [Concomitant]
     Indication: INSOMNIA
     Dosage: 0.25 MG, QD
     Route: 065
     Dates: start: 20121007, end: 20121112
  7. SOLU MEDROL [Concomitant]
     Indication: APLASTIC ANAEMIA
     Dosage: 250 MG, UNK
     Route: 065
     Dates: start: 20121006, end: 20121010
  8. SOLU MEDROL [Concomitant]
     Indication: PROPHYLAXIS
  9. NEUTROGIN [Concomitant]
     Indication: APLASTIC ANAEMIA
     Dosage: 250 MCG, UNK
     Route: 065
     Dates: start: 20121010, end: 20121012
  10. NEUTROGIN [Concomitant]
     Indication: RENAL FAILURE CHRONIC
     Dosage: 100 MCG, UNK
     Route: 065
     Dates: start: 20121013, end: 20121112
  11. NEUTROGIN [Concomitant]
     Indication: INSOMNIA

REACTIONS (3)
  - Death [Fatal]
  - Pulmonary haemorrhage [Not Recovered/Not Resolved]
  - Pneumonia [Not Recovered/Not Resolved]
